FAERS Safety Report 6517522-X (Version None)
Quarter: 2009Q4

REPORT INFORMATION
  Report Type: 
  Country: None (occurrence: None)
  Receive Date: 20091224
  Receipt Date: 20091217
  Transmission Date: 20100525
  Serious: Yes (Hospitalization)
  Sender: FDA-Public Use
  Company Number: US-ELI_LILLY_AND_COMPANY-US200912004270

PATIENT
  Sex: Male
  Weight: 78.458 kg

DRUGS (12)
  1. PEMETREXED [Suspect]
     Indication: NON-SMALL CELL LUNG CANCER
     Dosage: 500 MG/M2, OTHER
     Route: 042
     Dates: start: 20090811
  2. CARBOPLATIN [Suspect]
     Indication: NON-SMALL CELL LUNG CANCER
     Dosage: 6 D/F, OTHER
     Route: 042
  3. BEVACIZUMAB [Suspect]
     Indication: NON-SMALL CELL LUNG CANCER
     Dosage: 15 MG/KG, OTHER
     Route: 042
     Dates: start: 20090811, end: 20091201
  4. ZAPONEX [Concomitant]
     Indication: ASTHMA
     Dates: start: 20090601
  5. ALBUTEROL [Concomitant]
     Indication: ASTHMA
     Dates: start: 20090101
  6. ADVAIR DISKUS 100/50 [Concomitant]
     Indication: ASTHMA
     Dates: start: 20090501
  7. SINGULAIR [Concomitant]
     Indication: ASTHMA
     Dates: start: 20090501
  8. FOLIC ACID [Concomitant]
     Indication: PROPHYLAXIS
     Dates: start: 20090720
  9. PULMOZYME [Concomitant]
     Indication: ASTHMA
     Dates: start: 20090801
  10. ZOMETA [Concomitant]
     Indication: PROPHYLAXIS
     Dates: start: 20090817
  11. MIRALAX [Concomitant]
     Indication: CONSTIPATION
     Dates: start: 20090911
  12. SENOKOT [Concomitant]
     Indication: CONSTIPATION
     Dates: start: 20090908

REACTIONS (1)
  - PULMONARY HAEMORRHAGE [None]
